FAERS Safety Report 8403339-8 (Version None)
Quarter: 2012Q2

REPORT INFORMATION
  Report Type: 
  Country: None (occurrence: None)
  Receive Date: 20120601
  Receipt Date: 20120522
  Transmission Date: 20120825
  Serious: Yes (Other)
  Sender: FDA-Public Use
  Company Number: US-ROXANE LABORATORIES, INC.-2012-RO-01358RO

PATIENT
  Sex: Male

DRUGS (1)
  1. LACTULOSE SOLUTION USP, 10 G/15 ML [Suspect]

REACTIONS (3)
  - CHEST PAIN [None]
  - RENAL PAIN [None]
  - HEPATIC PAIN [None]
